FAERS Safety Report 7600228-3 (Version None)
Quarter: 2011Q3

REPORT INFORMATION
  Report Type: 
  Country: None (occurrence: None)
  Receive Date: 20110711
  Receipt Date: 20110627
  Transmission Date: 20111222
  Serious: Yes (Hospitalization)
  Sender: FDA-Public Use
  Company Number: JP-JNJFOC-20110702928

PATIENT
  Sex: Male

DRUGS (9)
  1. LEVOFLOXACIN [Suspect]
     Route: 048
     Dates: start: 20110607, end: 20110607
  2. LEVOFLOXACIN [Suspect]
     Route: 048
     Dates: start: 20110608, end: 20110608
  3. AMLODIPINE [Concomitant]
     Indication: HYPERTENSION
     Route: 048
  4. CARVEDILOL [Concomitant]
     Indication: HYPERTENSION
     Route: 048
  5. LEVOFLOXACIN [Suspect]
     Indication: BRONCHITIS
     Route: 048
     Dates: start: 20110606, end: 20110606
  6. EPLERENONE [Concomitant]
     Indication: HYPERTENSION
     Route: 048
  7. KREMEZIN [Concomitant]
     Indication: HYPERTENSION
     Route: 048
  8. TOWARAT [Concomitant]
     Indication: HYPERTENSION
     Route: 048
  9. TOWAMIN [Concomitant]
     Indication: HYPERTENSION
     Route: 048

REACTIONS (3)
  - RENAL FAILURE ACUTE [None]
  - ACCIDENTAL OVERDOSE [None]
  - URINARY RETENTION [None]
